FAERS Safety Report 6894089-8 (Version None)
Quarter: 2010Q3

REPORT INFORMATION
  Report Type: 
  Country: None (occurrence: None)
  Receive Date: 20100802
  Receipt Date: 20100722
  Transmission Date: 20110219
  Serious: Yes (Hospitalization)
  Sender: FDA-Public Use
  Company Number: FR-JNJFOC-20100707330

PATIENT
  Sex: Female

DRUGS (12)
  1. TOPIRAMATE [Suspect]
     Indication: EPILEPSY
     Route: 048
  2. FLUOXETINE [Concomitant]
     Route: 065
  3. LASIX [Concomitant]
     Route: 065
  4. PRITOR [Concomitant]
     Route: 065
  5. BROMAZEPAM [Concomitant]
     Route: 065
  6. ZOPICLONE [Concomitant]
     Route: 065
  7. MIANSERIN [Concomitant]
     Route: 065
  8. BUFLOMEDIL [Concomitant]
     Route: 065
  9. DOLIPRANE [Concomitant]
     Route: 065
  10. EDUCTYL [Concomitant]
     Route: 065
  11. LEVOTHYROXINE SODIUM [Concomitant]
     Route: 065
  12. DEBRIDAT [Concomitant]

REACTIONS (6)
  - ANHEDONIA [None]
  - ANXIETY [None]
  - ASTHENIA [None]
  - FALL [None]
  - MAJOR DEPRESSION [None]
  - PSYCHIATRIC SYMPTOM [None]
